FAERS Safety Report 11930933 (Version 1)
Quarter: 2016Q1

REPORT INFORMATION
  Report Type: Spontaneous
  Country: US (occurrence: US)
  Receive Date: 20160120
  Receipt Date: 20160120
  Transmission Date: 20160526
  Serious: No
  Sender: FDA-Public Use
  Company Number: US-INCYTE CORPORATION-2015IN004114

PATIENT
  Sex: Female

DRUGS (1)
  1. JAKAFI [Suspect]
     Active Substance: RUXOLITINIB
     Indication: MYELOFIBROSIS
     Dosage: 15 MG AM + 10 MG PM
     Route: 048
     Dates: start: 2013

REACTIONS (6)
  - Arthralgia [Unknown]
  - Neck pain [Unknown]
  - Myelofibrosis [Unknown]
  - Pruritus [Unknown]
  - Fatigue [Unknown]
  - Haemoglobin decreased [Unknown]
